FAERS Safety Report 16469748 (Version 1)
Quarter: 2019Q2

REPORT INFORMATION
  Report Type: Report from Study
  Country: US (occurrence: US)
  Receive Date: 20190624
  Receipt Date: 20190624
  Transmission Date: 20190711
  Serious: Yes (Hospitalization)
  Sender: FDA-Public Use
  Company Number: US-PFIZER INC-2019261238

PATIENT
  Age: 72 Year
  Sex: Female
  Weight: 70.4 kg

DRUGS (9)
  1. CYTARABINE. [Suspect]
     Active Substance: CYTARABINE
     Indication: ACUTE MYELOID LEUKAEMIA
     Dosage: 180 MG, INDUCTION, DAILY BY CONTINUOUS INFUSION
     Route: 041
     Dates: start: 20190426, end: 20190502
  2. EMEND [Concomitant]
     Active Substance: APREPITANT
     Indication: NAUSEA
     Dosage: 80 MG, 1X/DAY
     Route: 048
     Dates: start: 20190531
  3. DAUNORUBICIN [Suspect]
     Active Substance: DAUNORUBICIN
     Indication: ACUTE MYELOID LEUKAEMIA
     Dosage: 110 MG, INDUCTION, DAILY BY CONTINUOUS INFUSION
     Route: 041
     Dates: start: 20190426, end: 20190429
  4. DAUNORUBICIN [Suspect]
     Active Substance: DAUNORUBICIN
     Dosage: 110 MG, RE-INDUCTION, DAILY BY CONTINUOUS INFUSION
     Route: 041
     Dates: start: 20190529, end: 20190530
  5. CEFPODOXIME [Concomitant]
     Active Substance: CEFPODOXIME
     Indication: ANTIBIOTIC PROPHYLAXIS
     Dosage: 200 MG, 2X/DAY
     Route: 048
     Dates: start: 20190522
  6. PLACEBO [Suspect]
     Active Substance: UNSPECIFIED INGREDIENT
     Indication: ACUTE MYELOID LEUKAEMIA
     Dosage: ONCE DAILY CONTINUOUS
     Route: 048
     Dates: start: 20190426
  7. ALLOPURINOL. [Concomitant]
     Active Substance: ALLOPURINOL
     Indication: PROPHYLAXIS
     Dosage: 300 MG, 1X/DAY
     Route: 048
     Dates: start: 20190604
  8. CYTARABINE. [Suspect]
     Active Substance: CYTARABINE
     Dosage: 180 MG, RE-INDUCTION, DAILY BY CONTINUOUS INFUSION
     Route: 041
     Dates: start: 20190529, end: 20190531
  9. ACYCLOVIR [ACICLOVIR] [Concomitant]
     Active Substance: ACYCLOVIR
     Indication: ANTIBIOTIC PROPHYLAXIS
     Dosage: 400 MG, 2X/DAY
     Route: 048
     Dates: start: 20190521

REACTIONS (1)
  - Febrile neutropenia [Recovered/Resolved]

NARRATIVE: CASE EVENT DATE: 20190615
